FAERS Safety Report 4319876-1 (Version None)
Quarter: 2004Q1

REPORT INFORMATION
  Report Type: 
  Country: None (occurrence: None)
  Receive Date: 20040319
  Receipt Date: 20040310
  Transmission Date: 20041129
  Serious: Yes (Other)
  Sender: FDA-Public Use
  Company Number: PHBS2004JP03598

PATIENT

DRUGS (1)
  1. PARLODEL [Suspect]
     Indication: PITUITARY TUMOUR BENIGN
     Route: 048

REACTIONS (1)
  - PITUITARY HAEMORRHAGE [None]
